FAERS Safety Report 8170426-1 (Version None)
Quarter: 2012Q1

REPORT INFORMATION
  Report Type: 
  Country: None (occurrence: None)
  Receive Date: 20120228
  Receipt Date: 20120216
  Transmission Date: 20120608
  Serious: Yes (Hospitalization)
  Sender: FDA-Public Use
  Company Number: GB-AMGEN-GBRCT2012011997

PATIENT
  Age: 55 Year
  Sex: Female
  Weight: 132 kg

DRUGS (19)
  1. FOLIC ACID [Concomitant]
     Dosage: UNK
     Dates: start: 20110117
  2. SULPHADIAZINE                      /00076401/ [Concomitant]
     Dosage: UNK
     Dates: start: 20110117
  3. ISOSORBIDE MONONITRATE [Concomitant]
     Dosage: UNK
  4. MONTELUKAST [Concomitant]
     Dosage: UNK
  5. RAMIPRIL [Concomitant]
     Dosage: UNK
  6. MEBEVERINE [Concomitant]
     Dosage: UNK
     Dates: start: 20110117
  7. PIOGLITAZONE [Concomitant]
     Dosage: UNK
     Dates: start: 20110117
  8. FUROSEMIDE [Concomitant]
     Dosage: UNK
  9. ATORVASTATIN [Concomitant]
     Dosage: UNK
     Dates: start: 20110117
  10. FERROUS SULFATE TAB [Concomitant]
     Dosage: UNK
     Dates: start: 20110117
  11. SYMBICORT [Concomitant]
     Dosage: UNK
     Dates: start: 20110117
  12. ACETYLSALICYLIC ACID SRT [Concomitant]
     Dosage: UNK
  13. MORPHINE [Concomitant]
     Dosage: UNK
  14. ENBREL [Suspect]
     Indication: PRODUCT USED FOR UNKNOWN INDICATION
     Dosage: 50 MG, 2 TIMES/WK
     Dates: start: 20110316
  15. ENBREL [Suspect]
     Dosage: 50 MG, QWK
     Dates: start: 20100613, end: 20110315
  16. METFORMIN HCL [Concomitant]
     Dosage: UNK
     Dates: start: 20110117
  17. OMEPRAZOLE [Concomitant]
     Dosage: UNK
     Dates: start: 20110117
  18. ALBUTEROL [Concomitant]
     Dosage: UNK
     Dates: start: 20110117
  19. VERAPAMIL [Concomitant]
     Dosage: UNK

REACTIONS (1)
  - DYSPNOEA [None]
